FAERS Safety Report 8602063-6 (Version None)
Quarter: 2012Q3

REPORT INFORMATION
  Report Type: 
  Country: None (occurrence: None)
  Receive Date: 20120805
  Receipt Date: 20120725
  Transmission Date: 20120928
  Serious: Yes (Hospitalization)
  Sender: FDA-Public Use
  Company Number: USA/USA/12/0025218

PATIENT
  Age: 71 Year
  Sex: Male

DRUGS (2)
  1. DONEPEZIL HYDRCHLORIDE [Suspect]
     Indication: PRODUCT USED FOR UNKNOWN INDICATION
     Dosage: 10 MG, 1 D
  2. QUETIAPINE FUMARATE [Concomitant]

REACTIONS (1)
  - MANIA [None]
